FAERS Safety Report 8874229 (Version 1)
Quarter: 2012Q4

REPORT INFORMATION
  Report Type: 
  Country: US (occurrence: US)
  Receive Date: 20121030
  Receipt Date: 20121030
  Transmission Date: 20130627
  Serious: Yes (Hospitalization, Other)
  Sender: FDA-Public Use
  Company Number: US-ELI_LILLY_AND_COMPANY-US201210005209

PATIENT
  Sex: Male

DRUGS (1)
  1. BYDUREON [Suspect]
     Dosage: 2 mg, weekly (1/W)
     Route: 058

REACTIONS (2)
  - Pericardial effusion [Unknown]
  - Palpitations [Recovered/Resolved]
